FAERS Safety Report 13099236 (Version 2)
Quarter: 2017Q1

REPORT INFORMATION
  Report Type: Report from Study
  Country: PL (occurrence: PL)
  Receive Date: 20170109
  Receipt Date: 20170117
  Transmission Date: 20170428
  Serious: Yes (Hospitalization)
  Sender: FDA-Public Use
  Company Number: PHHO2017PL000444

PATIENT
  Age: 16 Year
  Sex: Female
  Weight: 64.8 kg

DRUGS (2)
  1. MILUKANTE [Concomitant]
     Indication: COUGH
     Dosage: 10 MG, QD
     Route: 048
     Dates: start: 20160511
  2. AIN457 [Suspect]
     Active Substance: SECUKINUMAB
     Indication: PSORIASIS
     Dosage: LOW DOSE
     Route: 058
     Dates: start: 20160718

REACTIONS (1)
  - Bronchitis [Recovered/Resolved]

NARRATIVE: CASE EVENT DATE: 20161215
